FAERS Safety Report 19073280 (Version 1)
Quarter: 2021Q1

REPORT INFORMATION
  Report Type: Spontaneous
  Country: GB (occurrence: GB)
  Receive Date: 20210330
  Receipt Date: 20210330
  Transmission Date: 20210420
  Serious: Yes (Disabling)
  Sender: FDA-Public Use
  Company Number: GB-PFIZER INC-2021295059

PATIENT
  Age: 73 Year
  Sex: Female
  Weight: 81 kg

DRUGS (20)
  1. FOLIC ACID. [Concomitant]
     Active Substance: FOLIC ACID
     Dosage: 1 DF, 1X/DAY
     Dates: start: 20201113
  2. HYDROCORTISONE. [Concomitant]
     Active Substance: HYDROCORTISONE
     Dosage: APPLY TO THE AFFECTED AREA(S), 1X/DAY
     Dates: start: 20200909
  3. OLIVE OIL [Concomitant]
     Active Substance: OLIVE OIL
     Dosage: APPLY 2?3 DROPS TO RIGHT EAR AT BEDTIME ^FOR 2?3...^
     Route: 001
     Dates: start: 20210215
  4. RAMIPRIL. [Concomitant]
     Active Substance: RAMIPRIL
     Dosage: 1 DF, 1X/DAY
     Dates: start: 20200907
  5. SOLIFENACIN [Concomitant]
     Active Substance: SOLIFENACIN
     Dosage: 1 DF, 1X/DAY
     Dates: start: 20200907, end: 20210202
  6. CARBAMAZEPINE. [Concomitant]
     Active Substance: CARBAMAZEPINE
     Dosage: 1 DF, 1X/DAY FOR 4 WEEKS THEN STOP
     Dates: start: 20201210, end: 20210126
  7. CLOBAZAM. [Concomitant]
     Active Substance: CLOBAZAM
     Indication: MUSCLE SPASMS
     Dosage: 1 DF, 2X/DAY
     Dates: start: 20200909
  8. ZEROBASE [PARAFFIN, LIQUID] [Concomitant]
     Dosage: USE AS DIRECTED
     Dates: start: 20200722
  9. OMEPRAZOLE. [Concomitant]
     Active Substance: OMEPRAZOLE
     Dosage: 1 DF, 1X/DAY
     Dates: start: 20201102
  10. TRAMADOL. [Concomitant]
     Active Substance: TRAMADOL
     Dosage: 1 DF, 4X/DAY
     Dates: start: 20200909
  11. COTRIMOXAZOLE [Concomitant]
     Active Substance: SULFAMETHOXAZOLE\TRIMETHOPRIM
     Dosage: 960 MG, AS A SINGLE DOSE ^2 HOU...^
     Dates: start: 20201111
  12. LAXIDO [Concomitant]
     Active Substance: POLYETHYLENE GLYCOL 3350\POTASSIUM CHLORIDE\SODIUM BICARBONATE\SODIUM CHLORIDE
     Dosage: 1 SACHET ONCE OR TWICE DAILY ^WHEN REQUIRED FOR ...^
     Dates: start: 20200907
  13. PARACETAMOL [Concomitant]
     Active Substance: ACETAMINOPHEN
     Dosage: 2 DF, 4X/DAY
     Dates: start: 20210305
  14. PREGABALIN. [Suspect]
     Active Substance: PREGABALIN
     Dosage: 1 DF, 2X/DAY
     Dates: start: 20210126
  15. CALCICHEW D3 [Concomitant]
     Active Substance: CALCIUM\CHOLECALCIFEROL
     Dosage: 1 DF, 2X/DAY
     Dates: start: 20200907
  16. EPADERM [Concomitant]
     Active Substance: MINERAL OIL\PETROLATUM\WAX, EMULSIFYING
     Dosage: TO BE APPLIED TO ALL ITCHY AREAS AT LEAST TWICE A DAY BY CARERS
     Dates: start: 20210122
  17. IBUPROFEN. [Concomitant]
     Active Substance: IBUPROFEN
     Dosage: APPLY 3?4 TIMES/DAY
     Dates: start: 20210305
  18. LEVOTHYROXINE. [Concomitant]
     Active Substance: LEVOTHYROXINE
     Dosage: 1 DF, 1X/DAY
     Dates: start: 20200909
  19. MIRABEGRON [Concomitant]
     Active Substance: MIRABEGRON
     Dosage: 1 DF, 1X/DAY
     Dates: start: 20201130, end: 20210122
  20. TRAZODONE [Concomitant]
     Active Substance: TRAZODONE HYDROCHLORIDE
     Dosage: 1 DF, 1X/DAY, AT NIGHT
     Dates: start: 20200909

REACTIONS (2)
  - Hallucination, visual [Recovering/Resolving]
  - Mobility decreased [Recovering/Resolving]

NARRATIVE: CASE EVENT DATE: 20210308
